FAERS Safety Report 20863254 (Version 1)
Quarter: 2022Q2

REPORT INFORMATION
  Report Type: Spontaneous
  Country: US (occurrence: None)
  Receive Date: 20220522
  Receipt Date: 20220522
  Transmission Date: 20220720
  Serious: Yes (Life-Threatening, Other)
  Sender: FDA-Public Use
  Company Number: None

PATIENT
  Age: 58 Year
  Sex: Female
  Weight: 103.5 kg

DRUGS (1)
  1. LEVOCARNITINE [Suspect]
     Active Substance: LEVOCARNITINE
     Indication: Carnitine deficiency
     Dosage: OTHER QUANTITY : 2 TABLET(S);?OTHER FREQUENCY : 7 TIMES PER DAY;?
     Route: 048

REACTIONS (8)
  - Packaging design issue [None]
  - Skin laceration [None]
  - Lip injury [None]
  - Oropharyngeal pain [None]
  - Seizure [None]
  - Tremor [None]
  - Haemorrhage [None]
  - Near death experience [None]

NARRATIVE: CASE EVENT DATE: 20220522
